FAERS Safety Report 4754648-5 (Version None)
Quarter: 2005Q3

REPORT INFORMATION
  Report Type: 
  Country: None (occurrence: None)
  Receive Date: 20050829
  Receipt Date: 20050617
  Transmission Date: 20060218
  Serious: Yes (Hospitalization, Other)
  Sender: FDA-Public Use
  Company Number: US-MERCK-0506USA02963

PATIENT
  Age: 60 Year
  Sex: Male
  Weight: 83 kg

DRUGS (16)
  1. ULTRACET [Concomitant]
     Route: 065
  2. VIOXX [Suspect]
     Route: 048
     Dates: start: 20020101, end: 20040101
  3. VIOXX [Suspect]
     Route: 048
  4. AMBIEN [Concomitant]
     Route: 065
  5. AMBIEN [Concomitant]
     Route: 065
  6. OXYCONTIN [Concomitant]
     Route: 065
  7. MS CONTIN [Concomitant]
     Indication: PAIN
     Route: 065
  8. SOMA [Concomitant]
     Route: 065
  9. SOMA [Concomitant]
     Route: 065
  10. DEPAKOTE [Concomitant]
     Route: 065
  11. PROZAC [Concomitant]
     Route: 065
  12. DARVOCET-N 100 [Concomitant]
     Route: 065
  13. DARVOCET-N 100 [Concomitant]
     Route: 065
  14. LORTAB [Concomitant]
     Route: 065
  15. DURAGESIC-100 [Concomitant]
     Route: 065
  16. HYDROXYZINE HYDROCHLORIDE AND INOSITOL NIACINATE AND MECLIZINE AND VIT [Concomitant]
     Route: 065

REACTIONS (12)
  - ACUTE RESPIRATORY DISTRESS SYNDROME [None]
  - ANAEMIA [None]
  - BLOOD CHOLESTEROL INCREASED [None]
  - CEREBROVASCULAR ACCIDENT [None]
  - CHEST PAIN [None]
  - DYSPHAGIA [None]
  - INTERMITTENT CLAUDICATION [None]
  - PAIN IN EXTREMITY [None]
  - PULMONARY EMBOLISM [None]
  - RENAL FAILURE ACUTE [None]
  - TOE DEFORMITY [None]
  - TRANSIENT ISCHAEMIC ATTACK [None]
